FAERS Safety Report 8096005 (Version 2)
Quarter: 2013Q4

REPORT INFORMATION
  Report Type: Report from Study
  Country: US (occurrence: US)
  Receive Date: 20110818
  Receipt Date: 20131114
  Transmission Date: 20140711
  Serious: Yes (Life-Threatening, Other)
  Sender: FDA-Public Use
  Company Number: US-ROCHE-796047

PATIENT
  Sex: 0

DRUGS (3)
  1. BEVACIZUMAB [Suspect]
     Indication: HEPATIC CANCER
     Dosage: EVERY OTHER WEEK STARTING 6 WEEKS AFTER SURGERY.
     Route: 042
  2. DEXAMETHASONE [Suspect]
     Indication: HEPATIC CANCER
     Route: 042
  3. FLOXURIDINE [Suspect]
     Indication: HEPATIC CANCER
     Dosage: 0.16 MG.KG X 30/PUMP FLOW RATE. INFUSION.
     Route: 065

REACTIONS (11)
  - Duodenal perforation [Unknown]
  - Confusional state [Unknown]
  - Hyponatraemia [Unknown]
  - Syncope [Unknown]
  - Hyperglycaemia [Unknown]
  - Myocardial infarction [Unknown]
  - Thrombosis [Unknown]
  - Blood bilirubin increased [Unknown]
  - Blood alkaline phosphatase increased [Unknown]
  - Aspartate aminotransferase increased [Unknown]
  - Bile duct stenosis [Unknown]
